FAERS Safety Report 9732350 (Version 1)
Quarter: 2013Q4

REPORT INFORMATION
  Report Type: Spontaneous
  Country: US (occurrence: None)
  Receive Date: 20131203
  Receipt Date: 20131203
  Transmission Date: 20140711
  Serious: Yes (Hospitalization)
  Sender: FDA-Public Use
  Company Number: SYM-2013-13581

PATIENT
  Age: 9 Year
  Sex: Female

DRUGS (1)
  1. XENAZINE [Suspect]
     Indication: CHOREA
     Dosage: 150  MG, 2 IN 1 D, ORAL
     Route: 048
     Dates: start: 20130206

REACTIONS (1)
  - Gastrointestinal disorder [None]
